FAERS Safety Report 5534133-3 (Version None)
Quarter: 2007Q4

REPORT INFORMATION
  Report Type: 
  Country: None (occurrence: None)
  Receive Date: 20071130
  Receipt Date: 20071116
  Transmission Date: 20080405
  Serious: Yes (Other)
  Sender: FDA-Public Use
  Company Number: 2007AL004936

PATIENT
  Sex: Male

DRUGS (4)
  1. TRAMADOL HCL [Suspect]
     Dosage: 100 MG QD UNKNOWN
  2. BUTRANS [Concomitant]
  3. MAXIMOL [Concomitant]
  4. DICLOFENAC [Concomitant]

REACTIONS (2)
  - PARALYSIS [None]
  - SOMNOLENCE [None]
